FAERS Safety Report 6860791-7 (Version None)
Quarter: 2010Q3

REPORT INFORMATION
  Report Type: 
  Country: None (occurrence: None)
  Receive Date: 20100719
  Receipt Date: 20100719
  Transmission Date: 20110219
  Serious: Yes (Other)
  Sender: FDA-Public Use
  Company Number: None

PATIENT
  Sex: Male
  Weight: 158.759 kg

DRUGS (1)
  1. SIMVASTATIN [Suspect]
     Indication: BLOOD TRIGLYCERIDES INCREASED
     Dosage: 40MG ONCE DAILY PO
     Route: 048
     Dates: start: 20100216, end: 20100713

REACTIONS (2)
  - MUSCLE DISORDER [None]
  - PARAESTHESIA [None]
